FAERS Safety Report 7300904-6 (Version None)
Quarter: 2010Q4

REPORT INFORMATION
  Report Type: 
  Country: None (occurrence: None)
  Receive Date: 20101230
  Receipt Date: 20101029
  Transmission Date: 20110411
  Serious: Yes (Hospitalization)
  Sender: FDA-Public Use
  Company Number: 20100511

PATIENT
  Age: 53 Year
  Sex: Female
  Weight: 139 kg

DRUGS (5)
  1. VENOFER [Suspect]
     Indication: IRON DEFICIENCY ANAEMIA
     Dosage: 100 MG/TREATMENT (X10 DOSES) INTRAVENOUS BOLUS
     Route: 040
     Dates: start: 20100821, end: 20100925
  2. BACTRIM [Concomitant]
  3. HECTORAL [Concomitant]
  4. HEPARIN [Concomitant]
  5. RAMIPRIL [Concomitant]

REACTIONS (1)
  - ANAPHYLACTOID REACTION [None]
